FAERS Safety Report 4831502-1 (Version None)
Quarter: 2005Q4

REPORT INFORMATION
  Report Type: 
  Country: None (occurrence: None)
  Receive Date: 20051118
  Receipt Date: 20051108
  Transmission Date: 20060501
  Serious: Yes (Hospitalization)
  Sender: FDA-Public Use
  Company Number: DE-JNJFOC-20051102510

PATIENT

DRUGS (2)
  1. REOPRO [Suspect]
     Route: 042
  2. PLACEBO [Suspect]
     Route: 042

REACTIONS (3)
  - GASTRIC ULCER [None]
  - GASTROINTESTINAL HAEMORRHAGE [None]
  - PERIPHERAL EMBOLISM [None]
